FAERS Safety Report 6656833-4 (Version None)
Quarter: 2010Q1

REPORT INFORMATION
  Report Type: 
  Country: None (occurrence: None)
  Receive Date: 20100325
  Receipt Date: 20100318
  Transmission Date: 20100710
  Serious: Yes (Other)
  Sender: FDA-Public Use
  Company Number: 1000012584

PATIENT
  Sex: Male

DRUGS (1)
  1. LEXAPRO [Suspect]
     Dosage: (1 IN 1 D), ORAL
     Route: 048
     Dates: start: 20100201, end: 20100201

REACTIONS (4)
  - AMNESIA [None]
  - CONVULSION [None]
  - HEADACHE [None]
  - MUSCLE SPASMS [None]
